FAERS Safety Report 16447537 (Version 2)
Quarter: 2019Q3

REPORT INFORMATION
  Report Type: Spontaneous
  Country: CL (occurrence: CL)
  Receive Date: 20190619
  Receipt Date: 20190703
  Transmission Date: 20191004
  Serious: Yes (Hospitalization, Other)
  Sender: FDA-Public Use
  Company Number: CL-AMGEN-CHLSP2019096170

PATIENT
  Age: 59 Year
  Sex: Female

DRUGS (1)
  1. ENBREL [Suspect]
     Active Substance: ETANERCEPT
     Indication: RHEUMATOID ARTHRITIS
     Dosage: UNK
     Route: 065
     Dates: start: 2019

REACTIONS (11)
  - Abdominal pain upper [Not Recovered/Not Resolved]
  - Feeding disorder [Unknown]
  - Pain [Unknown]
  - Intestinal haemorrhage [Unknown]
  - Flatulence [Not Recovered/Not Resolved]
  - Irritable bowel syndrome [Unknown]
  - Haematochezia [Unknown]
  - Gastrointestinal disorder [Not Recovered/Not Resolved]
  - Gastrointestinal haemorrhage [Unknown]
  - Condition aggravated [Not Recovered/Not Resolved]
  - Faeces discoloured [Not Recovered/Not Resolved]

NARRATIVE: CASE EVENT DATE: 20190604
